FAERS Safety Report 4309933-8 (Version None)
Quarter: 2004Q1

REPORT INFORMATION
  Report Type: 
  Country: None (occurrence: None)
  Receive Date: 20040303
  Receipt Date: 20040130
  Transmission Date: 20041129
  Serious: No
  Sender: FDA-Public Use
  Company Number: US-BRISTOL-MYERS SQUIBB COMPANY-12492369

PATIENT
  Age: 20 Year
  Sex: Male

DRUGS (2)
  1. ABILIFY [Suspect]
     Indication: SCHIZOAFFECTIVE DISORDER
  2. ABILIFY [Suspect]
     Indication: BIPOLAR DISORDER

REACTIONS (2)
  - MUSCLE TIGHTNESS [None]
  - PAIN [None]
